FAERS Safety Report 8971384 (Version 1)
Quarter: 2012Q4

REPORT INFORMATION
  Report Type: 
  Country: US (occurrence: US)
  Receive Date: 20121217
  Receipt Date: 20121217
  Transmission Date: 20130627
  Serious: Yes (Hospitalization, Other)
  Sender: FDA-Public Use
  Company Number: PHHO2008US13429

PATIENT
  Age: 66 Year
  Sex: Female
  Weight: 148.7 kg

DRUGS (8)
  1. AFINITOR [Suspect]
     Indication: METASTATIC MALIGNANT MELANOMA
     Dosage: 150 mg, QD
     Route: 048
     Dates: start: 20081009
  2. BEVACIZUMAB [Suspect]
     Indication: METASTATIC MALIGNANT MELANOMA
     Dosage: 15 mg/kg, Q3W
     Route: 042
     Dates: start: 20081009, end: 20081109
  3. COUMADIN [Concomitant]
     Indication: PRODUCT USED FOR UNKNOWN INDICATION
     Dosage: 5 mg, QD
  4. ZOLOFT [Concomitant]
     Indication: ANXIETY
     Dosage: 50 mg, UNK
  5. HYDROCHLOROTHIAZIDE [Concomitant]
     Indication: PRODUCT USED FOR UNKNOWN INDICATION
  6. CELEBREX [Concomitant]
     Indication: BACK PAIN
     Dosage: 200 mg, QD
  7. NORCO [Concomitant]
     Indication: BACK PAIN
     Dosage: 7.5/500 mg, Q6H
  8. TYLENOL WITH CODEINE [Concomitant]
     Indication: PRODUCT USED FOR UNKNOWN INDICATION

REACTIONS (9)
  - Deep vein thrombosis [Recovered/Resolved]
  - Oedema peripheral [Recovered/Resolved]
  - Pulmonary embolism [Recovered/Resolved]
  - Dyspnoea [Recovered/Resolved]
  - Sinus tachycardia [Recovered/Resolved]
  - Abasia [Recovered/Resolved]
  - Lung infiltration [Recovered/Resolved]
  - Pulmonary infarction [Recovered/Resolved]
  - QRS axis abnormal [Recovered/Resolved]
